FAERS Safety Report 17917901 (Version 1)
Quarter: 2020Q2

REPORT INFORMATION
  Report Type: Spontaneous
  Country: CN (occurrence: CN)
  Receive Date: 20200619
  Receipt Date: 20200619
  Transmission Date: 20200714
  Serious: Yes (Hospitalization)
  Sender: FDA-Public Use
  Company Number: CN-PFIZER INC-2020236579

PATIENT
  Age: 30 Year
  Sex: Male
  Weight: 75 kg

DRUGS (5)
  1. METHOTREXATE. [Suspect]
     Active Substance: METHOTREXATE
     Dosage: 0.8 G, 1X/DAY
     Route: 041
     Dates: start: 20200422, end: 20200422
  2. METHOTREXATE. [Suspect]
     Active Substance: METHOTREXATE
     Indication: CHEMOTHERAPY
     Dosage: 0.2 G, 1X/DAY
     Route: 041
     Dates: start: 20200422, end: 20200422
  3. CYTARABINE. [Suspect]
     Active Substance: CYTARABINE
     Indication: CHEMOTHERAPY
     Dosage: 3 G, 2X/DAY
     Route: 041
     Dates: start: 20200423, end: 20200423
  4. RITUXIMAB. [Suspect]
     Active Substance: RITUXIMAB
     Indication: CHEMOTHERAPY
     Dosage: 0.1 G, 3X/DAY
     Route: 041
     Dates: start: 20200422, end: 20200422
  5. METHOTREXATE. [Suspect]
     Active Substance: METHOTREXATE
     Dosage: 0.8 G, 1X/DAY
     Route: 041
     Dates: start: 20200422, end: 20200422

REACTIONS (4)
  - Myalgia [Recovering/Resolving]
  - Red blood cell count decreased [Recovering/Resolving]
  - White blood cell count decreased [Recovering/Resolving]
  - Platelet count decreased [Recovering/Resolving]

NARRATIVE: CASE EVENT DATE: 20200425
